FAERS Safety Report 5003362-X (Version None)
Quarter: 2006Q2

REPORT INFORMATION
  Report Type: 
  Country: None (occurrence: None)
  Receive Date: 20060511
  Receipt Date: 20060502
  Transmission Date: 20061013
  Serious: Yes (Hospitalization, Disabling)
  Sender: FDA-Public Use
  Company Number: HQWYE397317MAR06

PATIENT
  Age: 74 Year
  Sex: Female

DRUGS (6)
  1. CORDAREX (AMIODARONE, TABLET) [Suspect]
     Dosage: 200 MG 1X PER 1 DAY
     Route: 048
     Dates: start: 20030101, end: 20060101
  2. LEVOTHYROXINE SODIUM [Concomitant]
  3. ENALAPRIL [Concomitant]
  4. BISOPROLOL FUMARATE AND HYDROCHLOROTHIAZIDE [Concomitant]
  5. ISCOVER (CLOPIDOGREL SULFATE) [Concomitant]
  6. PANTOPRAZOLE SODIUM [Concomitant]

REACTIONS (4)
  - COMPUTERISED TOMOGRAM ABDOMEN ABNORMAL [None]
  - HEPATOTOXICITY [None]
  - POLYNEUROPATHY [None]
  - QUADRIPARESIS [None]
